FAERS Safety Report 24528339 (Version 5)
Quarter: 2025Q1

REPORT INFORMATION
  Report Type: Spontaneous
  Country: US (occurrence: US)
  Receive Date: 20241021
  Receipt Date: 20250115
  Transmission Date: 20250408
  Serious: No
  Sender: PFIZER
  Company Number: US-PFIZER INC-202400275550

PATIENT
  Age: 3 Year
  Sex: Male

DRUGS (3)
  1. GENOTROPIN [Suspect]
     Active Substance: SOMATROPIN
     Dosage: 0.4 MG, DAILY
  2. GENOTROPIN [Suspect]
     Active Substance: SOMATROPIN
     Dosage: 0.6 MG ALTERNATING WITH 0.8 MG
  3. GENOTROPIN [Suspect]
     Active Substance: SOMATROPIN
     Dosage: 0.6 MG ALTERNATING WITH 0.8 MG

REACTIONS (4)
  - Device use error [Unknown]
  - Device operational issue [Unknown]
  - Device breakage [Unknown]
  - Drug dose omission by device [Unknown]
